FAERS Safety Report 7914400-6 (Version None)
Quarter: 2011Q4

REPORT INFORMATION
  Report Type: 
  Country: None (occurrence: None)
  Receive Date: 20111115
  Receipt Date: 20111102
  Transmission Date: 20120403
  Serious: Yes (Hospitalization, Other)
  Sender: FDA-Public Use
  Company Number: US-ELI_LILLY_AND_COMPANY-US201107005832

PATIENT
  Sex: Female

DRUGS (14)
  1. FORTEO [Suspect]
     Dosage: 20 UG, QD
     Route: 065
  2. FORTEO [Suspect]
     Dosage: 20 UG, QD
     Route: 065
     Dates: end: 20110901
  3. METOPROLOL [Concomitant]
     Dosage: 50 MG, BID
  4. FORTEO [Suspect]
     Dosage: 20 UG, QD
     Route: 065
     Dates: end: 20111024
  5. SYNTHROID [Concomitant]
     Dosage: 125 MG, QD
  6. FORTEO [Suspect]
     Indication: OSTEOPOROSIS
     Dosage: 20 UG, QD
     Route: 065
     Dates: start: 20080101
  7. FORTEO [Suspect]
     Dosage: 20 UG, QD
     Route: 065
     Dates: start: 20110101
  8. XANAX [Concomitant]
  9. VITAMIN D [Concomitant]
  10. INSULIN [Concomitant]
     Dosage: UNK, BID
  11. PRAVASTATIN SODIUM [Concomitant]
     Dosage: 20 MG, BID
  12. ISOSORBIDE DINITRATE [Concomitant]
     Dosage: 60 MG, QD
  13. ASPIRIN [Concomitant]
     Dosage: 81 MG, UNK
  14. FISH OIL [Concomitant]
     Dosage: 1000 MG, UNKNOWN

REACTIONS (13)
  - DYSPNOEA [None]
  - PAIN [None]
  - PAIN IN EXTREMITY [None]
  - HYPOTHYROIDISM [None]
  - LUNG DISORDER [None]
  - VASCULAR OCCLUSION [None]
  - CARDIAC DISORDER [None]
  - MEMORY IMPAIRMENT [None]
  - PNEUMONIA [None]
  - INJECTION SITE PAIN [None]
  - PLEURITIC PAIN [None]
  - INTENTIONAL DRUG MISUSE [None]
  - CHEST PAIN [None]
